FAERS Safety Report 5062861-5 (Version None)
Quarter: 2006Q3

REPORT INFORMATION
  Report Type: 
  Country: None (occurrence: None)
  Receive Date: 20060724
  Receipt Date: 20060714
  Transmission Date: 20061208
  Serious: Yes (Life-Threatening, Hospitalization)
  Sender: FDA-Public Use
  Company Number: T200600112

PATIENT
  Age: 67 Year
  Sex: Male
  Weight: 69 kg

DRUGS (2)
  1. OPTIRAY 320 [Suspect]
     Indication: COMPUTERISED TOMOGRAM ABDOMEN
     Dosage: 95 ML, SINGLE, INTRAVENOUS
     Route: 042
     Dates: start: 20060323, end: 20060323
  2. AMLODIPINE BESILATE (AMLODIPINE BESILATE) TABLET [Concomitant]

REACTIONS (4)
  - ANAPHYLACTIC SHOCK [None]
  - APHASIA [None]
  - FALL [None]
  - LARYNGEAL OEDEMA [None]
